FAERS Safety Report 15281655 (Version 4)
Quarter: 2018Q4

REPORT INFORMATION
  Report Type: Report from Study
  Country: CA (occurrence: CA)
  Receive Date: 20180815
  Receipt Date: 20181129
  Transmission Date: 20190204
  Serious: Yes (Hospitalization, Other)
  Sender: FDA-Public Use
  Company Number: CA-JAZZ-2018-CA-012352

PATIENT
  Age: 77 Year
  Sex: Male

DRUGS (11)
  1. XYREM [Suspect]
     Active Substance: SODIUM OXYBATE
     Indication: PARKINSON^S DISEASE
     Dosage: 1.5 G, BID
     Route: 048
     Dates: start: 20180528, end: 20180602
  2. METFORMIN [Concomitant]
     Active Substance: METFORMIN HYDROCHLORIDE
  3. XYREM [Suspect]
     Active Substance: SODIUM OXYBATE
     Dosage: 2.25 G, BID
     Route: 048
     Dates: start: 20180604, end: 20180630
  4. XYREM [Suspect]
     Active Substance: SODIUM OXYBATE
     Dosage: 2.0 G FOR THE FIRST DOSE
     Route: 048
     Dates: start: 20180702, end: 20180702
  5. XYREM [Suspect]
     Active Substance: SODIUM OXYBATE
     Dosage: 1.5 G FOR THE SECOND DOSE
     Route: 048
     Dates: start: 20180701, end: 20180701
  6. XYREM [Suspect]
     Active Substance: SODIUM OXYBATE
     Dosage: 1.5 G, BID
     Route: 048
     Dates: start: 20180710, end: 20180801
  7. XYREM [Suspect]
     Active Substance: SODIUM OXYBATE
     Dosage: 3 G, BID
     Route: 048
     Dates: start: 20180603, end: 20180603
  8. XYREM [Suspect]
     Active Substance: SODIUM OXYBATE
     Dosage: 1.5 G, SECOOND DOSE
     Route: 048
     Dates: start: 20180702, end: 20180702
  9. XYREM [Suspect]
     Active Substance: SODIUM OXYBATE
     Dosage: 1.5 G, BID
     Route: 048
     Dates: start: 20180701, end: 20180801
  10. XYREM [Suspect]
     Active Substance: SODIUM OXYBATE
     Dosage: 2.5G FOR THE FIRST DOSE
     Route: 048
     Dates: start: 20180701, end: 20180701
  11. XYREM [Suspect]
     Active Substance: SODIUM OXYBATE
     Dosage: 1.5 G, BID
     Route: 048
     Dates: start: 20180703, end: 20180801

REACTIONS (5)
  - Fall [Recovered/Resolved]
  - Drug ineffective for unapproved indication [Unknown]
  - Diabetes mellitus [Unknown]
  - Fracture [Unknown]
  - Weight decreased [Unknown]

NARRATIVE: CASE EVENT DATE: 20180709
